FAERS Safety Report 9857384 (Version 1)
Quarter: 2014Q1

REPORT INFORMATION
  Report Type: Spontaneous
  Country: None (occurrence: US)
  Receive Date: 20140131
  Receipt Date: 20140131
  Transmission Date: 20141002
  Serious: Yes (Other)
  Sender: FDA-Public Use
  Company Number: 2014SP000288

PATIENT
  Age: 38 Year
  Sex: Female

DRUGS (5)
  1. VANCOMYCIN [Suspect]
     Indication: PRODUCT USED FOR UNKNOWN INDICATION
  2. PIP/TAZO [Suspect]
     Indication: PRODUCT USED FOR UNKNOWN INDICATION
  3. LEVOFLOXACIN [Suspect]
     Indication: PRODUCT USED FOR UNKNOWN INDICATION
  4. DIANEAL /07719801/ [Suspect]
     Indication: PRODUCT USED FOR UNKNOWN INDICATION
     Route: 033
     Dates: start: 20130201, end: 20130722
  5. DIANEAL /07719801/ [Suspect]
     Indication: PRODUCT USED FOR UNKNOWN INDICATION
     Route: 033
     Dates: start: 20130201

REACTIONS (8)
  - Peritonitis bacterial [Unknown]
  - Peritoneal haemorrhage [Unknown]
  - Convulsion [Unknown]
  - Hypoxia [Unknown]
  - Respiratory failure [Unknown]
  - Klebsiella sepsis [Unknown]
  - Hypocalcaemia [Unknown]
  - Fluid overload [Unknown]
